FAERS Safety Report 7775592-5 (Version None)
Quarter: 2011Q3

REPORT INFORMATION
  Report Type: 
  Country: None (occurrence: None)
  Receive Date: 20110923
  Receipt Date: 20110920
  Transmission Date: 20111222
  Serious: Yes (Death, Hospitalization)
  Sender: FDA-Public Use
  Company Number: GB-ASTRAZENECA-2011SE56341

PATIENT
  Age: 21 Year
  Sex: Male

DRUGS (3)
  1. SEROQUEL XR [Suspect]
     Indication: PSYCHOTIC DISORDER
     Route: 048
     Dates: start: 20100916
  2. FLUOXETINE [Concomitant]
     Dates: start: 20101018
  3. LYRICA [Suspect]
     Indication: ANXIETY
     Route: 065
     Dates: start: 20101018

REACTIONS (1)
  - PANCREATITIS ACUTE [None]
